FAERS Safety Report 7672664-0 (Version None)
Quarter: 2011Q3

REPORT INFORMATION
  Report Type: 
  Country: None (occurrence: None)
  Receive Date: 20110809
  Receipt Date: 20110809
  Transmission Date: 20111222
  Serious: Yes (Hospitalization)
  Sender: FDA-Public Use
  Company Number: JP-B.I. PHARMACEUTICALS,INC./RIDGEFIELD-2011-BP-16912NB

PATIENT
  Sex: Male
  Weight: 81 kg

DRUGS (6)
  1. PRADAXA [Suspect]
     Indication: ATRIAL FIBRILLATION
     Dosage: 300 MG
     Route: 048
     Dates: start: 20110518, end: 20110613
  2. NORVASC [Concomitant]
     Dosage: 5 MG
     Route: 048
  3. ASPIRIN [Concomitant]
     Dosage: 100 MG
     Route: 048
  4. MERISLON [Concomitant]
     Dosage: 18 MG
     Route: 048
  5. PRAVAMATE [Concomitant]
     Dosage: 5 MG
     Route: 048
  6. OLMESARTAN MEDOXOMIL [Concomitant]
     Dosage: 20 MG
     Route: 048

REACTIONS (3)
  - HYPERGLYCAEMIA [None]
  - NAUSEA [None]
  - ABDOMINAL PAIN UPPER [None]
